FAERS Safety Report 20052699 (Version 2)
Quarter: 2021Q4

REPORT INFORMATION
  Report Type: Spontaneous
  Country: NL (occurrence: NL)
  Receive Date: 20211110
  Receipt Date: 20211223
  Transmission Date: 20220303
  Serious: Yes (Other)
  Sender: FDA-Public Use
  Company Number: None

PATIENT
  Sex: Female
  Weight: 73 kg

DRUGS (4)
  1. FLUTICASONE PROPIONATE\SALMETEROL XINAFOATE [Suspect]
     Active Substance: FLUTICASONE PROPIONATE\SALMETEROL XINAFOATE
     Indication: Asthma
     Dosage: SALMETEROL/FLUTICASON INHALATION POWDER 50/250UG/DO / SALMETEROL/FLUTICASON NEUTEC INHPDR,50/250MCG
     Dates: start: 20210714
  2. ETORICOXIB [Concomitant]
     Active Substance: ETORICOXIB
     Dosage: 60 MG, THERAPY START AND END DATE: ASKU,ETORICOXIB TABLET FO 60MG / BRAND NAME NOT SPECIFIED
  3. ESTRIOL / SYNAPAUSE E3 [Concomitant]
     Dosage: 0,5 MG, THERAPY START AND END DATE: ASKU, ESTRIOL ONULE 0.5MG / SYNAPAUSE E3 ONULE 0.5MG
  4. PANTOPRAZOLE SODIUM [Concomitant]
     Active Substance: PANTOPRAZOLE SODIUM
     Dosage: 20 MG, THERAPY START AND END DATE: ASKU,PANTOPRAZOL TABLET MSR 20MG / BRAND NAME NOT SPECIFIED

REACTIONS (5)
  - Pharyngeal swelling [Not Recovered/Not Resolved]
  - Lip swelling [Not Recovered/Not Resolved]
  - Therapeutic response unexpected [Unknown]
  - Oropharyngeal pain [Not Recovered/Not Resolved]
  - Swollen tongue [Not Recovered/Not Resolved]
